FAERS Safety Report 8830107 (Version 1)
Quarter: 2012Q4

REPORT INFORMATION
  Report Type: 
  Country: IT (occurrence: IT)
  Receive Date: 20121008
  Receipt Date: 20121008
  Transmission Date: 20130627
  Serious: Yes (Hospitalization)
  Sender: FDA-Public Use
  Company Number: IT-ASTRAZENECA-2012SE71160

PATIENT
  Sex: Female

DRUGS (11)
  1. TENORMIN [Suspect]
     Indication: HYPERTENSION
     Route: 048
     Dates: start: 20040101
  2. TENORMIN [Suspect]
     Indication: HYPERTENSION
     Route: 048
  3. TENORMIN [Suspect]
     Indication: HYPERTENSION
     Route: 048
  4. DOXAZOSIN [Suspect]
     Indication: HYPERTENSION
     Route: 048
     Dates: start: 20080101, end: 20120905
  5. BIVIS [Suspect]
     Indication: HYPERTENSION
     Route: 048
     Dates: start: 20120228, end: 20120906
  6. LASIX [Suspect]
     Indication: HYPERTENSION
     Route: 048
     Dates: start: 20080101
  7. ALDACTONE [Suspect]
     Indication: HYPERTENSION
     Route: 048
     Dates: start: 20090101
  8. SIMVASTATIN [Concomitant]
  9. CALCIUM [Concomitant]
  10. CARDIOOASPIRIN [Concomitant]
     Dosage: 100 mg gastro-resistant tablets
  11. FOSAVANCE [Concomitant]
     Dosage: 70 mg/5600 I.U
     Route: 048

REACTIONS (4)
  - Blood potassium increased [Unknown]
  - Blood urea increased [Unknown]
  - Blood creatine increased [Unknown]
  - Hypotension [Recovered/Resolved]
